FAERS Safety Report 19739959 (Version 1)
Quarter: 2021Q3

REPORT INFORMATION
  Report Type: Report from Study
  Country: IT (occurrence: IT)
  Receive Date: 20210824
  Receipt Date: 20210824
  Transmission Date: 20211014
  Serious: Yes (Other)
  Sender: FDA-Public Use
  Company Number: IT-MYLANLABS-2021M1053769

PATIENT
  Age: 8 Year
  Sex: Female

DRUGS (15)
  1. SIMETHICONE (DIMETHICONE) [Concomitant]
     Active Substance: DIMETHICONE
     Indication: ABDOMINAL PAIN
     Dosage: 60 GTT DROPS, QD
     Route: 048
     Dates: start: 20210302
  2. ITRACONAZOLE. [Suspect]
     Active Substance: ITRACONAZOLE
     Indication: PROPHYLAXIS
     Dosage: 100 MILLIGRAM, QD
     Route: 048
     Dates: start: 20210218, end: 20210304
  3. METHYLPREDNISOLONE. [Interacting]
     Active Substance: METHYLPREDNISOLONE
     Dosage: 45 MILLIGRAM
     Route: 042
     Dates: start: 20210219, end: 20210226
  4. METHYLPREDNISOLONE. [Interacting]
     Active Substance: METHYLPREDNISOLONE
     Dosage: 40 MILLIGRAM, QD
     Dates: start: 20210227, end: 20210228
  5. AZATHIOPRINE. [Concomitant]
     Active Substance: AZATHIOPRINE
     Indication: CHRONIC GRANULOMATOUS DISEASE
     Dosage: 50 MILLIGRAM, QD
     Dates: start: 20200101, end: 20210225
  6. DIBASE [Concomitant]
     Active Substance: CHOLECALCIFEROL
     Indication: VITAMIN D DEFICIENCY
     Dosage: 3 GTT DROPS, QD
     Route: 048
  7. TINSET [Concomitant]
     Active Substance: OXATOMIDE
     Dosage: 12 GTT DROPS, QD
  8. MESALAZINE [Concomitant]
     Active Substance: MESALAMINE
     Indication: CHRONIC GRANULOMATOUS DISEASE
     Dosage: 1600 MILLIGRAM, QD
     Route: 048
  9. UNASYN [Concomitant]
     Active Substance: AMPICILLIN SODIUM\SULBACTAM SODIUM
     Dosage: 3.6 GRAM, QD
  10. EUTIROX [Concomitant]
     Active Substance: LEVOTHYROXINE SODIUM
     Indication: WILLIAMS SYNDROME
     Dosage: 25 MICROGRAM, QD
     Route: 048
  11. PREDNISONE. [Concomitant]
     Active Substance: PREDNISONE
     Indication: CHRONIC GRANULOMATOUS DISEASE
     Dosage: 35 MILLIGRAM, QD
     Dates: start: 20210303
  12. BACTRIM [Interacting]
     Active Substance: SULFAMETHOXAZOLE\TRIMETHOPRIM
     Indication: PROPHYLAXIS
     Dosage: 7 MILLILITER, QD
     Route: 058
     Dates: start: 20210218, end: 20210304
  13. METRONIDAZOLE. [Interacting]
     Active Substance: METRONIDAZOLE
     Indication: CHRONIC GRANULOMATOUS DISEASE
     Dosage: 525 MILLIGRAM, QD
     Route: 042
     Dates: start: 20210218, end: 20210301
  14. METHYLPREDNISOLONE. [Interacting]
     Active Substance: METHYLPREDNISOLONE
     Indication: CHRONIC GRANULOMATOUS DISEASE
     Dosage: 35 MILLIGRAM, QD
     Route: 042
     Dates: start: 20210301
  15. INFLIXIMAB [Suspect]
     Active Substance: INFLIXIMAB
     Indication: CHRONIC GRANULOMATOUS DISEASE
     Dosage: 150 MILLIGRAM, QD
     Route: 042
     Dates: start: 20210218, end: 20210304

REACTIONS (3)
  - Sinus tachycardia [Not Recovered/Not Resolved]
  - Hypertension [Not Recovered/Not Resolved]
  - Drug interaction [Not Recovered/Not Resolved]

NARRATIVE: CASE EVENT DATE: 20210303
